FAERS Safety Report 20475542 (Version 7)
Quarter: 2022Q2

REPORT INFORMATION
  Report Type: Report from Study
  Country: US (occurrence: US)
  Receive Date: 20220215
  Receipt Date: 20220509
  Transmission Date: 20220720
  Serious: No
  Sender: FDA-Public Use
  Company Number: US-NOVARTISTESTPH-NVSC2022US034424

PATIENT
  Age: 79 Year
  Sex: Female

DRUGS (3)
  1. PIQRAY [Suspect]
     Active Substance: ALPELISIB
     Indication: Breast cancer
     Dosage: 300 MG, QD (TABLET)
     Route: 048
     Dates: start: 202202
  2. PIQRAY [Suspect]
     Active Substance: ALPELISIB
     Dosage: 150 MG
     Route: 065
  3. PIQRAY [Suspect]
     Active Substance: ALPELISIB
     Dosage: 150 MG, BID
     Route: 048
     Dates: start: 20220209

REACTIONS (6)
  - Muscular weakness [Unknown]
  - Polydipsia [Unknown]
  - Adverse drug reaction [Unknown]
  - Trismus [Unknown]
  - Muscle spasms [Unknown]
  - Stomatitis [Unknown]

NARRATIVE: CASE EVENT DATE: 20220321
